FAERS Safety Report 21833004 (Version 1)
Quarter: 2023Q1

REPORT INFORMATION
  Report Type: Spontaneous
  Country: US (occurrence: US)
  Receive Date: 20230106
  Receipt Date: 20230106
  Transmission Date: 20230417
  Serious: No
  Sender: FDA-Public Use
  Company Number: US-ALLERGAN-2240592US

PATIENT
  Age: 41 Year
  Sex: Female
  Weight: 99.79 kg

DRUGS (3)
  1. QULIPTA [Suspect]
     Active Substance: ATOGEPANT
     Indication: Migraine
     Dosage: UNK, QD
     Route: 048
     Dates: start: 202210
  2. ZOFRAN [Concomitant]
     Active Substance: ONDANSETRON HYDROCHLORIDE
  3. DROPERIDOL [Concomitant]
     Active Substance: DROPERIDOL

REACTIONS (6)
  - Vertigo [Recovering/Resolving]
  - Labyrinthitis [Recovering/Resolving]
  - Nasopharyngitis [Unknown]
  - Gastroenteritis viral [Not Recovered/Not Resolved]
  - Vomiting [Unknown]
  - Dehydration [Recovered/Resolved]

NARRATIVE: CASE EVENT DATE: 20221101
